FAERS Safety Report 19304081 (Version 1)
Quarter: 2021Q2

REPORT INFORMATION
  Report Type: Spontaneous
  Country: US (occurrence: US)
  Receive Date: 20210525
  Receipt Date: 20210525
  Transmission Date: 20210717
  Serious: No
  Sender: FDA-Public Use
  Company Number: US-SA-2021SA168446

PATIENT
  Sex: Female

DRUGS (1)
  1. XYZAL ALLERGY 24HR [Suspect]
     Active Substance: LEVOCETIRIZINE DIHYDROCHLORIDE
     Indication: SEASONAL ALLERGY
     Dosage: 5 MG
     Route: 065

REACTIONS (4)
  - Hypersensitivity [Unknown]
  - Cough [Unknown]
  - Upper-airway cough syndrome [Unknown]
  - Therapeutic response shortened [Unknown]

NARRATIVE: CASE EVENT DATE: 20210517
